FAERS Safety Report 6208507-1 (Version None)
Quarter: 2009Q2

REPORT INFORMATION
  Report Type: 
  Country: None (occurrence: None)
  Receive Date: 20090529
  Receipt Date: 20090526
  Transmission Date: 20091009
  Serious: Yes (Death, Life-Threatening, Hospitalization)
  Sender: FDA-Public Use
  Company Number: US-ROXANE LABORATORIES, INC.-2009-RO-00523RO

PATIENT
  Age: 69 Year
  Sex: Female

DRUGS (13)
  1. AZATHIOPRINE [Suspect]
     Indication: AUTOIMMUNE HEPATITIS
     Dosage: 50MG
  2. DEXAMETHASONE 4MG TAB [Suspect]
     Indication: BRAIN OEDEMA
     Route: 042
  3. METHOTREXATE [Suspect]
     Indication: ANGIOCENTRIC LYMPHOMA
  4. RITUXAN [Suspect]
     Indication: ANGIOCENTRIC LYMPHOMA
     Route: 042
  5. AZT [Suspect]
     Indication: ANTIVIRAL TREATMENT
     Dosage: 3G
     Route: 042
  6. GANCICLOVIR [Suspect]
     Indication: ANTIVIRAL TREATMENT
     Dosage: 2G
  7. VASOPRESSORS [Concomitant]
     Indication: HYPOTENSION
  8. EMPIRIC BROAD SPECTRUM ANTIBIOTICS [Concomitant]
  9. ANTIFUNGAL [Concomitant]
     Indication: PROPHYLAXIS
  10. BLOOD PRODUCTS [Concomitant]
     Indication: SUPPORTIVE CARE
  11. FILGRASTIM [Concomitant]
  12. SODIUM CHLORIDE [Concomitant]
     Indication: BLOOD SODIUM ABNORMAL
  13. OXYGEN [Concomitant]

REACTIONS (9)
  - ACUTE RESPIRATORY FAILURE [None]
  - ANGIOCENTRIC LYMPHOMA [None]
  - DEATH [None]
  - ESCHERICHIA INFECTION [None]
  - HEPATIC FUNCTION ABNORMAL [None]
  - HYPOTENSION [None]
  - MORAXELLA INFECTION [None]
  - PANCYTOPENIA [None]
  - PULMONARY OEDEMA [None]
